FAERS Safety Report 8000648-1 (Version None)
Quarter: 2011Q4

REPORT INFORMATION
  Report Type: 
  Country: None (occurrence: None)
  Receive Date: 20111222
  Receipt Date: 20111214
  Transmission Date: 20120403
  Serious: Yes (Death, Hospitalization)
  Sender: FDA-Public Use
  Company Number: MX-JNJFOC-20111209203

PATIENT
  Age: 48 Year
  Sex: Male
  Weight: 132 kg

DRUGS (3)
  1. HALOPERIDOL [Suspect]
     Indication: PRODUCT USED FOR UNKNOWN INDICATION
     Route: 065
  2. AMPHETAMINES [Concomitant]
     Route: 065
  3. CLONAZEPAM [Concomitant]
     Route: 065

REACTIONS (3)
  - SEPTIC SHOCK [None]
  - PNEUMONIA [None]
  - GASTROENTERITIS [None]
